FAERS Safety Report 25816020 (Version 1)
Quarter: 2025Q3

REPORT INFORMATION
  Report Type: Spontaneous
  Country: US (occurrence: US)
  Receive Date: 20250918
  Receipt Date: 20250918
  Transmission Date: 20251020
  Serious: Yes (Other)
  Sender: AMGEN
  Company Number: US-AMGEN-USASP2025183744

PATIENT
  Age: 80 Year
  Sex: Female
  Weight: 57.15 kg

DRUGS (10)
  1. EVENITY [Suspect]
     Active Substance: ROMOSOZUMAB-AQQG
     Indication: Osteoporosis
     Dosage: UNK, QMO
     Route: 065
     Dates: start: 20250805, end: 20250908
  2. BUPROPION HYDROCHLORIDE [Concomitant]
     Active Substance: BUPROPION HYDROCHLORIDE
     Dosage: 150 MILLIGRAM, QD
     Route: 048
  3. MOMETASONE [Concomitant]
     Active Substance: MOMETASONE
     Route: 061
  4. SSD [Concomitant]
     Active Substance: SILVER SULFADIAZINE
     Dosage: UNK UNK, BID
     Route: 061
  5. TRIAMCINOLONE ACETONIDE [Concomitant]
     Active Substance: TRIAMCINOLONE ACETONIDE
     Route: 061
  6. VAGIFEM [Concomitant]
     Active Substance: ESTRADIOL
     Dosage: 10 MICROGRAM, BID
     Route: 067
  7. TETANUS TOXOID, REDUCED DIPHTHERIA TOXOID AND ACELLULAR PERTUSSIS VACC [Concomitant]
     Active Substance: TETANUS TOXOID, REDUCED DIPHTHERIA TOXOID AND ACELLULAR PERTUSSIS VACCINE ADSORBED, TDAP
     Route: 030
     Dates: start: 20221014
  8. INFLUENZA VIRUS VACCINE [Concomitant]
     Active Substance: INFLUENZA VIRUS VACCINE
     Dates: start: 20121017
  9. PNEUMOCOCCAL VACCINE POLYVALENT [Concomitant]
     Active Substance: PNEUMOCOCCAL VACCINE POLYVALENT
     Dates: start: 20110920
  10. Td (adult) [Concomitant]
     Route: 030
     Dates: start: 20210308

REACTIONS (6)
  - Injection site erythema [Recovered/Resolved]
  - Injection site swelling [Recovered/Resolved]
  - Injection site discomfort [Recovered/Resolved]
  - Pruritus [Recovered/Resolved]
  - Dysphagia [Recovered/Resolved]
  - Blood pressure increased [Unknown]

NARRATIVE: CASE EVENT DATE: 20250805
